FAERS Safety Report 24948572 (Version 2)
Quarter: 2025Q1

REPORT INFORMATION
  Report Type: Spontaneous
  Country: TR (occurrence: TR)
  Receive Date: 20250210
  Receipt Date: 20250303
  Transmission Date: 20250409
  Serious: Yes (Other)
  Sender: BAYER HEALTHCARE LLC
  Company Number: TR-BAYER-2025A014853

PATIENT
  Age: 53 Year

DRUGS (1)
  1. LORATADINE [Suspect]
     Active Substance: LORATADINE
     Indication: Pruritus

REACTIONS (6)
  - Urticaria [Not Recovered/Not Resolved]
  - Pruritus [Recovering/Resolving]
  - Wound complication [None]
  - Swelling face [Not Recovered/Not Resolved]
  - Rash pruritic [Not Recovered/Not Resolved]
  - Illness [None]
